FAERS Safety Report 24624160 (Version 2)
Quarter: 2024Q4

REPORT INFORMATION
  Report Type: Spontaneous
  Country: IN (occurrence: IN)
  Receive Date: 20241115
  Receipt Date: 20241125
  Transmission Date: 20250114
  Serious: No
  Sender: ARGENX BVBA
  Company Number: IN-ARGENX-2024-ARGX-IN010050

PATIENT

DRUGS (1)
  1. VYVGART [Suspect]
     Active Substance: EFGARTIGIMOD ALFA-FCAB
     Indication: Myasthenia gravis
     Route: 065

REACTIONS (2)
  - Dyspnoea [Unknown]
  - Dysphagia [Unknown]
